FAERS Safety Report 24214853 (Version 1)
Quarter: 2024Q3

REPORT INFORMATION
  Report Type: Spontaneous
  Country: US (occurrence: US)
  Receive Date: 20240815
  Receipt Date: 20240815
  Transmission Date: 20241017
  Serious: Yes (Death, Life-Threatening, Hospitalization, Other)
  Sender: Waylis
  Company Number: US-WAYLIS-2024-US-043126

PATIENT
  Age: 38 Year
  Sex: Male

DRUGS (2)
  1. CARVEDILOL [Suspect]
     Active Substance: CARVEDILOL
     Indication: Intentional overdose
  2. WARFARIN [Suspect]
     Active Substance: WARFARIN
     Indication: Intentional overdose

REACTIONS (8)
  - Cardiac arrest [Fatal]
  - Overdose [Not Recovered/Not Resolved]
  - Hallucinations, mixed [Unknown]
  - Cardiogenic shock [Not Recovered/Not Resolved]
  - Shock haemorrhagic [Not Recovered/Not Resolved]
  - Acute kidney injury [Not Recovered/Not Resolved]
  - Disseminated intravascular coagulation [Not Recovered/Not Resolved]
  - Metabolic function test abnormal [Not Recovered/Not Resolved]
